FAERS Safety Report 22388570 (Version 1)
Quarter: 2023Q2

REPORT INFORMATION
  Report Type: Spontaneous
  Country: HU (occurrence: HU)
  Receive Date: 20230531
  Receipt Date: 20230531
  Transmission Date: 20230721
  Serious: Yes (Hospitalization, Other)
  Sender: FDA-Public Use
  Company Number: None

PATIENT
  Age: 61 Year
  Sex: Male

DRUGS (9)
  1. LEVOFLOXACIN [Suspect]
     Active Substance: LEVOFLOXACIN
     Indication: Pneumonia
     Dosage: UNK,  UNK
  2. SULFAMETHOXAZOLE\TRIMETHOPRIM [Suspect]
     Active Substance: SULFAMETHOXAZOLE\TRIMETHOPRIM
     Indication: Pneumonia
     Dosage: UNK,  UNK
  3. SULFAMETHOXAZOLE\TRIMETHOPRIM [Suspect]
     Active Substance: SULFAMETHOXAZOLE\TRIMETHOPRIM
     Indication: Antibiotic therapy
  4. CYCLOSPORINE [Suspect]
     Active Substance: CYCLOSPORINE
     Indication: Immunosuppressant drug therapy
     Dosage: UNK,  UNK
  5. CYCLOSPORINE [Suspect]
     Active Substance: CYCLOSPORINE
     Indication: Heart transplant
  6. VANCOMYCIN [Suspect]
     Active Substance: VANCOMYCIN
     Indication: Pneumonia
     Dosage: UNK,  UNK
  7. MEROPENEM [Suspect]
     Active Substance: MEROPENEM
     Indication: Pneumonia
     Dosage: UNK,  UNK
  8. CELLCEPT [Suspect]
     Active Substance: MYCOPHENOLATE MOFETIL
     Indication: Immunosuppressant drug therapy
     Dosage: UNK,  UNK
  9. CELLCEPT [Suspect]
     Active Substance: MYCOPHENOLATE MOFETIL
     Indication: Heart transplant

REACTIONS (11)
  - Azotaemia [Not Recovered/Not Resolved]
  - Upper respiratory tract infection [Recovering/Resolving]
  - Respiratory failure [Recovering/Resolving]
  - Drug ineffective [Recovering/Resolving]
  - Confusional state [Recovering/Resolving]
  - Multiple organ dysfunction syndrome [Recovering/Resolving]
  - Circulatory collapse [Recovering/Resolving]
  - Dyspnoea [Recovering/Resolving]
  - Sepsis [Recovering/Resolving]
  - Acute kidney injury [Recovering/Resolving]
  - Pneumonia [Recovering/Resolving]

NARRATIVE: CASE EVENT DATE: 20170601
